FAERS Safety Report 24538083 (Version 6)
Quarter: 2025Q1

REPORT INFORMATION
  Report Type: Spontaneous
  Country: JP (occurrence: JP)
  Receive Date: 20241023
  Receipt Date: 20250209
  Transmission Date: 20250408
  Serious: Yes (Death, Other)
  Sender: AMGEN
  Company Number: JP-KYOWAKIRIN-2024KK023365

PATIENT
  Age: 77 Year
  Sex: Female

DRUGS (9)
  1. DARBEPOETIN ALFA [Suspect]
     Active Substance: DARBEPOETIN ALFA
     Indication: Nephrogenic anaemia
     Dosage: 30 MICROGRAM, Q2WK
     Route: 040
     Dates: start: 20160927
  2. DARBEPOETIN ALFA [Suspect]
     Active Substance: DARBEPOETIN ALFA
     Dosage: 60 MICROGRAM, QWK
     Route: 040
     Dates: end: 20241105
  3. EVOCALCET [Concomitant]
     Active Substance: EVOCALCET
     Indication: Hyperparathyroidism secondary
     Dosage: 1 MG, QD
     Route: 048
     Dates: start: 20180515, end: 20241105
  4. ENTRESTO [Concomitant]
     Active Substance: SACUBITRIL\VALSARTAN
     Indication: Hypertension
     Dosage: 200 MG, QD
     Route: 048
     Dates: start: 20230221, end: 20241105
  5. ZINC [Concomitant]
     Active Substance: ZINC
     Indication: Hypozincaemia
     Dosage: 25 MG, QD
     Route: 048
     Dates: start: 20230902, end: 20241105
  6. ZOLPIDEM TARTRATE [Concomitant]
     Active Substance: ZOLPIDEM TARTRATE
     Indication: Insomnia
     Dosage: 5 MG, QD
     Route: 048
     Dates: start: 20110810, end: 20241105
  7. CILNIDIPINE [Concomitant]
     Active Substance: CILNIDIPINE
     Indication: Hypertension
     Dosage: 10 MG, BID
     Route: 048
     Dates: start: 20050223, end: 20241105
  8. CARVEDILOL [Concomitant]
     Active Substance: CARVEDILOL
     Indication: Hypertension
     Dosage: 10 MG, BID
     Route: 048
     Dates: start: 20050223, end: 20241105
  9. FOLIC ACID [Concomitant]
     Active Substance: FOLIC ACID
     Indication: Folate deficiency
     Dosage: 5 MG, 1X/WEEK
     Route: 048
     Dates: start: 20160928, end: 20241105

REACTIONS (6)
  - Aplasia pure red cell [Fatal]
  - Arrhythmia [Fatal]
  - Hypozincaemia [Fatal]
  - Folate deficiency [Fatal]
  - Drug ineffective [Fatal]
  - Off label use [Unknown]

NARRATIVE: CASE EVENT DATE: 20160927
